FAERS Safety Report 8382590-X (Version None)
Quarter: 2012Q2

REPORT INFORMATION
  Report Type: 
  Country: None (occurrence: None)
  Receive Date: 20120524
  Receipt Date: 20120515
  Transmission Date: 20120825
  Serious: Yes (Hospitalization)
  Sender: FDA-Public Use
  Company Number: AT-UCBSA-057478

PATIENT
  Age: 67 Year
  Sex: Female

DRUGS (4)
  1. METHOTREXATE [Concomitant]
     Route: 048
     Dates: start: 20110601
  2. METHOTREXATE [Concomitant]
     Indication: RHEUMATOID ARTHRITIS
     Route: 048
     Dates: start: 20110501, end: 20110601
  3. CLUCOCORTICOIDE [Concomitant]
     Dosage: FOR THREE WEEKS, DAILY, UNKNOWN DOSE
     Route: 048
     Dates: start: 20110901, end: 20110101
  4. CIMZIA [Suspect]
     Indication: RHEUMATOID ARTHRITIS
     Route: 058
     Dates: start: 20110801

REACTIONS (1)
  - DEVICE RELATED INFECTION [None]
